FAERS Safety Report 5840219-6 (Version None)
Quarter: 2008Q3

REPORT INFORMATION
  Report Type: 
  Country: None (occurrence: None)
  Receive Date: 20080730
  Receipt Date: 20080515
  Transmission Date: 20090109
  Serious: No
  Sender: FDA-Public Use
  Company Number: PHEH2008US03464

PATIENT
  Age: 59 Year
  Sex: Female
  Weight: 67.6 kg

DRUGS (3)
  1. TEKTURNA [Suspect]
     Dosage: 150, QD, ORAL
     Route: 048
  2. ACIPHEX [Concomitant]
  3. VERAPAMIL [Concomitant]

REACTIONS (2)
  - HYPOTENSION [None]
  - MALAISE [None]
